FAERS Safety Report 4449237-6 (Version None)
Quarter: 2004Q3

REPORT INFORMATION
  Report Type: 
  Country: None (occurrence: None)
  Receive Date: 20040913
  Receipt Date: 20040827
  Transmission Date: 20050211
  Serious: Yes (Life-Threatening, Hospitalization)
  Sender: FDA-Public Use
  Company Number: 2004-00437

PATIENT
  Age: 65 Year
  Sex: Female
  Weight: 78.2 kg

DRUGS (17)
  1. VELCADE [Suspect]
     Indication: MULTIPLE MYELOMA
     Dates: start: 20040101, end: 20040809
  2. SINGULAIR [Concomitant]
  3. VICODIN [Concomitant]
  4. MORPHINE [Concomitant]
  5. LASIX [Concomitant]
  6. PERI-COLACE (DOCUSATE SODIUM, CANSANTHRANOL) [Concomitant]
  7. LEVAQUIN [Concomitant]
  8. K-TAB [Concomitant]
  9. DIOVAN [Concomitant]
  10. GLUCOPHAGE [Concomitant]
  11. NEXIUM [Concomitant]
  12. LIPITOR [Concomitant]
  13. THEO-24 (THEOPHYLLINE) [Concomitant]
  14. OXYBUTON (OXYBUTYNIN HYDROCHLORIDE) [Concomitant]
  15. PREDNISONE [Concomitant]
  16. ZOLOFT [Concomitant]
  17. REGLAN [Concomitant]

REACTIONS (11)
  - ASPIRATION [None]
  - BLOOD CHLORIDE DECREASED [None]
  - BLOOD GLUCOSE INCREASED [None]
  - BLOOD POTASSIUM INCREASED [None]
  - BLOOD SODIUM DECREASED [None]
  - GRAND MAL CONVULSION [None]
  - HEART RATE INCREASED [None]
  - HYPERTENSION [None]
  - HYPOTENSION [None]
  - RESPIRATORY ARREST [None]
  - VOMITING [None]
